FAERS Safety Report 17141859 (Version 1)
Quarter: 2019Q4

REPORT INFORMATION
  Report Type: Spontaneous
  Country: JP (occurrence: JP)
  Receive Date: 20191211
  Receipt Date: 20191211
  Transmission Date: 20200122
  Serious: Yes (Death, Other)
  Sender: FDA-Public Use
  Company Number: JP-JNJFOC-20191137284

PATIENT
  Age: 7 Decade
  Sex: Female

DRUGS (3)
  1. DUROTEP [Suspect]
     Active Substance: FENTANYL
     Indication: CANCER PAIN
     Dosage: UNKNOWN?TAPE
     Route: 062
  2. DUROTEP [Suspect]
     Active Substance: FENTANYL
     Dosage: 62.5 MCG/HR
     Route: 062
  3. OPSO [Concomitant]
     Active Substance: MORPHINE HYDROCHLORIDE
     Indication: CANCER PAIN
     Route: 048

REACTIONS (4)
  - Taste disorder [Not Recovered/Not Resolved]
  - Thirst [Not Recovered/Not Resolved]
  - Colon cancer [Fatal]
  - Hallucination [Not Recovered/Not Resolved]
